FAERS Safety Report 7163957-4 (Version None)
Quarter: 2010Q4

REPORT INFORMATION
  Report Type: 
  Country: None (occurrence: None)
  Receive Date: 20101215
  Receipt Date: 20101201
  Transmission Date: 20110411
  Serious: Yes (Hospitalization, Congenital Anomaly)
  Sender: FDA-Public Use
  Company Number: A0679438A

PATIENT
  Sex: Male
  Weight: 3.8 kg

DRUGS (3)
  1. PAXIL CR [Suspect]
     Indication: DEPRESSION
     Dates: start: 20040622
  2. PRENATAL VITAMINS [Concomitant]
  3. PHENERGAN [Concomitant]

REACTIONS (8)
  - ATRIAL SEPTAL DEFECT [None]
  - CEREBRAL INFARCTION [None]
  - DEVELOPMENTAL DELAY [None]
  - DISSEMINATED INTRAVASCULAR COAGULATION [None]
  - DRUG EXPOSURE DURING PREGNANCY [None]
  - PATENT DUCTUS ARTERIOSUS [None]
  - PERSISTENT FOETAL CIRCULATION [None]
  - SEPSIS [None]
